FAERS Safety Report 9240603 (Version 1)
Quarter: 2013Q1

REPORT INFORMATION
  Report Type: Spontaneous
  Country: US (occurrence: None)
  Receive Date: 20121120
  Receipt Date: 20121120
  Transmission Date: 20140127
  Serious: No
  Sender: FDA-Public Use
  Company Number: 1000038659

PATIENT
  Age: 67 Year
  Sex: Male

DRUGS (1)
  1. VIIBRYD (VILADOZOONE HYDROCHLORIDE) (10MILLIGRAM, TABLETS) [Suspect]
     Indication: ANXIETY
     Route: 048
     Dates: start: 201202, end: 2012

REACTIONS (3)
  - Therapeutic response decreased [None]
  - Weight decreased [None]
  - Off label use [None]
